FAERS Safety Report 16955501 (Version 1)
Quarter: 2019Q4

REPORT INFORMATION
  Report Type: Spontaneous
  Country: GB (occurrence: GB)
  Receive Date: 20191024
  Receipt Date: 20191024
  Transmission Date: 20200122
  Serious: Yes (Hospitalization, Other)
  Sender: FDA-Public Use
  Company Number: GB-BRISTOL-MYERS SQUIBB COMPANY-BMS-2019-099687

PATIENT
  Age: 75 Year
  Sex: Male
  Weight: 62.6 kg

DRUGS (1)
  1. NIVOLUMAB [Suspect]
     Active Substance: NIVOLUMAB
     Indication: RENAL CELL CARCINOMA
     Dosage: 480 MILLIGRAM, Q4WK
     Route: 042
     Dates: start: 20190116, end: 20190410

REACTIONS (3)
  - Ulcer [Unknown]
  - Stevens-Johnson syndrome [Not Recovered/Not Resolved]
  - Skin lesion [Unknown]

NARRATIVE: CASE EVENT DATE: 20190823
